FAERS Safety Report 8111961-1 (Version None)
Quarter: 2012Q1

REPORT INFORMATION
  Report Type: 
  Country: None (occurrence: None)
  Receive Date: 20120203
  Receipt Date: 20110926
  Transmission Date: 20120608
  Serious: No
  Sender: FDA-Public Use
  Company Number: US-GLAXOSMITHKLINE-A0946014A

PATIENT
  Age: 77 Year
  Sex: Female

DRUGS (5)
  1. ARIXTRA [Suspect]
     Indication: PULMONARY EMBOLISM
     Dosage: 5MG PER DAY
     Route: 058
     Dates: start: 20110301, end: 20110919
  2. ACETAMINOPHEN [Concomitant]
  3. METOPROLOL [Concomitant]
  4. LORAZEPAM [Concomitant]
  5. OMEPRAZOLE [Concomitant]

REACTIONS (4)
  - ABDOMINAL PAIN UPPER [None]
  - CONTUSION [None]
  - INJECTION SITE HAEMATOMA [None]
  - ABDOMINAL PAIN LOWER [None]
